FAERS Safety Report 12856910 (Version 1)
Quarter: 2016Q4

REPORT INFORMATION
  Report Type: Spontaneous
  Country: US (occurrence: US)
  Receive Date: 20161018
  Receipt Date: 20161018
  Transmission Date: 20170207
  Serious: Yes (Life-Threatening, Disabling, Other)
  Sender: FDA-Public Use
  Company Number: None

PATIENT
  Age: 52 Year
  Sex: Female
  Weight: 70.31 kg

DRUGS (1)
  1. GILENYA [Suspect]
     Active Substance: FINGOLIMOD HYDROCHLORIDE
     Indication: MULTIPLE SCLEROSIS
     Dosage: GILENYA 0.5MG - PO - FREQUENCY - 1
     Route: 048
     Dates: start: 20081028

REACTIONS (5)
  - Laboratory test abnormal [None]
  - Tricuspid valve incompetence [None]
  - Skin lesion [None]
  - Nuclear magnetic resonance imaging abnormal [None]
  - Multiple sclerosis [None]

NARRATIVE: CASE EVENT DATE: 20081028
